FAERS Safety Report 7375381 (Version 4)
Quarter: 2013Q3

REPORT INFORMATION
  Report Type: Spontaneous
  Country: JP (occurrence: JP)
  Receive Date: 20100503
  Receipt Date: 20130917
  Transmission Date: 20140515
  Serious: Yes (Other)
  Sender: FDA-Public Use
  Company Number: JP-PFIZER INC-2010051025

PATIENT
  Age: 58 Year
  Sex: Female
  Weight: 53.8 kg

DRUGS (17)
  1. VIAGRA [Suspect]
     Indication: PULMONARY HYPERTENSION
     Dosage: 3.125 MG, 3X/DAY
     Route: 048
     Dates: start: 20050801, end: 20050803
  2. VIAGRA [Suspect]
     Dosage: 6.25 MG, 3X/DAY
     Route: 048
     Dates: start: 20050804, end: 20050810
  3. VIAGRA [Suspect]
     Dosage: 12.5 MG, 3X/DAY
     Route: 048
     Dates: start: 20050811, end: 20051204
  4. VIAGRA [Suspect]
     Dosage: 12.5 MG, 2X/DAY
     Route: 048
     Dates: start: 20051205, end: 20051208
  5. VIAGRA [Suspect]
     Dosage: 12.5 MG, 1X/DAY
     Route: 048
     Dates: start: 20051209, end: 20051212
  6. EPOPROSTENOL [Concomitant]
     Indication: PULMONARY HYPERTENSION
     Dosage: 16.8 NG/KG/MIN
     Dates: start: 20050715, end: 20051117
  7. EPOPROSTENOL [Concomitant]
     Dosage: 17.4 NG/KG/MIN
     Dates: start: 20051118
  8. BOSENTAN [Concomitant]
     Indication: PULMONARY HYPERTENSION
     Dosage: 32.25 MG DAILY
     Dates: start: 20051125, end: 20051128
  9. WARFARIN [Concomitant]
     Indication: PULMONARY HYPERTENSION
     Dosage: 2.5 MG DAILY
     Dates: start: 20050208
  10. BERAPROST [Concomitant]
     Dosage: UNK
  11. GASTER [Concomitant]
     Indication: GASTRITIS
     Dosage: UNK
     Dates: start: 20050208
  12. HYDREA [Concomitant]
     Indication: THROMBOCYTOSIS
     Dosage: 1000 MG DAILY
     Dates: start: 20050208
  13. ZYLORIC [Concomitant]
     Indication: HYPERURICAEMIA
     Dosage: 200 MG DAILY
     Dates: start: 20050208
  14. LASIX [Concomitant]
     Indication: RIGHT VENTRICULAR FAILURE
     Dosage: 60 MG DAILY
     Dates: start: 20050208
  15. ALDACTONE [Concomitant]
     Indication: RIGHT VENTRICULAR FAILURE
     Dosage: 50 MG DAILLY
     Dates: start: 20050208
  16. DIGOXIN [Concomitant]
     Indication: RIGHT VENTRICULAR FAILURE
     Dosage: 0.125 MG DAILY
     Dates: start: 20050208
  17. BAYASPIRIN [Concomitant]
     Indication: THROMBOCYTOSIS
     Dosage: 100 MG DAILY
     Dates: start: 20050208

REACTIONS (5)
  - Disorientation [Recovered/Resolved]
  - Headache [Recovered/Resolved]
  - Ear discomfort [Recovered/Resolved]
  - Oedema [Not Recovered/Not Resolved]
  - Off label use [Recovered/Resolved]
